FAERS Safety Report 4861854-8 (Version None)
Quarter: 2005Q4

REPORT INFORMATION
  Report Type: 
  Country: None (occurrence: None)
  Receive Date: 20051129
  Receipt Date: 20050929
  Transmission Date: 20060501
  Serious: No
  Sender: FDA-Public Use
  Company Number: WAES 0509USA04724

PATIENT
  Age: 58 Year
  Sex: Male

DRUGS (5)
  1. ZETIA [Suspect]
     Indication: BLOOD CHOLESTEROL INCREASED
     Dosage: 10 MG DAILY PO
     Route: 048
     Dates: start: 20030101
  2. ZETIA [Suspect]
     Indication: BLOOD CHOLESTEROL INCREASED
     Dosage: PO
     Route: 048
     Dates: start: 20050701
  3. HYDRODIURIL [Concomitant]
  4. NIACIN [Concomitant]
  5. OMEGA 3 MARINE TRIGLYCERIDES [Concomitant]

REACTIONS (2)
  - DRUG INEFFECTIVE [None]
  - TOTAL CHOLESTEROL/HDL RATIO DECREASED [None]
